FAERS Safety Report 5745590-1 (Version None)
Quarter: 2008Q2

REPORT INFORMATION
  Report Type: 
  Country: None (occurrence: None)
  Receive Date: 20080521
  Receipt Date: 20080513
  Transmission Date: 20081010
  Serious: Yes (Other)
  Sender: FDA-Public Use
  Company Number: GB-PFIZER INC-2008041646

PATIENT
  Age: 79 Year
  Sex: Male
  Weight: 65 kg

DRUGS (10)
  1. ATORVASTATIN CALCIUM [Suspect]
     Indication: BLOOD CHOLESTEROL INCREASED
  2. ACETYLSALICYLIC ACID SRT [Suspect]
     Indication: PROPHYLAXIS
  3. EPOETIN BETA [Suspect]
     Indication: ANAEMIA
     Dosage: FREQ:1 DOSE FORM 6 TIMES WEEKLY
  4. FERROUS SULFATE TAB [Suspect]
     Indication: ANAEMIA
  5. HYDROXOCOBALAMIN [Suspect]
     Dosage: FREQ:5 DOSE FORMS EVERY 3 MONTHS
  6. LANSOPRAZOLE [Suspect]
     Indication: PROPHYLAXIS AGAINST GASTROINTESTINAL ULCER
  7. ACETAMINOPHEN [Suspect]
     Dosage: FREQ:2 DOSE FORMS FOUR TIMES DAILY
  8. TAMSULOSIN HCL [Suspect]
  9. VALSARTAN [Suspect]
     Indication: HYPERTENSION
  10. VENTOLIN [Suspect]
     Indication: ASTHMA
     Dosage: FREQ:AS NECESSARY

REACTIONS (1)
  - IDIOPATHIC PULMONARY FIBROSIS [None]
